FAERS Safety Report 9032663 (Version 2)
Quarter: 2013Q2

REPORT INFORMATION
  Report Type: Spontaneous
  Country: US (occurrence: US)
  Receive Date: 20130126
  Receipt Date: 20130604
  Transmission Date: 20140414
  Serious: No
  Sender: FDA-Public Use
  Company Number: US-009507513-1301USA008637

PATIENT
  Sex: Female
  Weight: 90.7 kg

DRUGS (2)
  1. IMPLANON [Suspect]
     Indication: CONTRACEPTION
     Dosage: 1 ROD
     Route: 030
     Dates: start: 201103
  2. IMPLANON [Suspect]
     Dosage: 1 ROD
     Route: 059
     Dates: start: 2008, end: 20110307

REACTIONS (6)
  - Incision site pain [Not Recovered/Not Resolved]
  - Weight increased [Unknown]
  - Device difficult to use [Unknown]
  - Incorrect route of drug administration [Unknown]
  - Device deployment issue [Unknown]
  - Menstruation irregular [Not Recovered/Not Resolved]
